FAERS Safety Report 7349557-1 (Version None)
Quarter: 2011Q1

REPORT INFORMATION
  Report Type: 
  Country: None (occurrence: None)
  Receive Date: 20110314
  Receipt Date: 20110214
  Transmission Date: 20110831
  Serious: No
  Sender: FDA-Public Use
  Company Number: PR-B.I. PHARMACEUTICALS,INC./RIDGEFIELD-2011-BP-02644BP

PATIENT
  Sex: Male

DRUGS (4)
  1. AMLODIPINE [Concomitant]
     Indication: ATRIAL FIBRILLATION
  2. COREG [Concomitant]
     Indication: ATRIAL FIBRILLATION
  3. FLECAINIDE ACETATE [Concomitant]
     Indication: ATRIAL FIBRILLATION
  4. PRADAXA [Suspect]
     Indication: ATRIAL FIBRILLATION
     Dosage: 300 MG
     Route: 048
     Dates: start: 20101201

REACTIONS (2)
  - GASTRIC PH DECREASED [None]
  - OEDEMA PERIPHERAL [None]
